FAERS Safety Report 8188558-0 (Version None)
Quarter: 2012Q1

REPORT INFORMATION
  Report Type: 
  Country: None (occurrence: None)
  Receive Date: 20120306
  Receipt Date: 20120302
  Transmission Date: 20120608
  Serious: Yes (Hospitalization, Other)
  Sender: FDA-Public Use
  Company Number: PHHY2011US57980

PATIENT
  Sex: Male
  Weight: 68 kg

DRUGS (17)
  1. EXJADE [Suspect]
     Indication: IRON OVERLOAD
     Dosage: 1500 MG, DAILY
     Route: 048
     Dates: start: 20091007
  2. PROMETHAZINE [Concomitant]
     Indication: NAUSEA
     Dosage: 25 MG, Q4H
     Route: 048
  3. HYDROXYUREA [Concomitant]
     Dosage: 500 MG, TID
     Route: 048
  4. EXJADE [Suspect]
     Dosage: 1500 MG, DAILY
     Route: 048
     Dates: start: 20110630
  5. PROMETHAZINE [Concomitant]
     Indication: VOMITING
  6. FOLIC ACID [Concomitant]
     Dosage: 1 MG, TWICE A DAY
  7. BENADRYL [Concomitant]
     Dosage: 25 MG, Q6H
     Route: 048
  8. ZOFRAN [Concomitant]
     Dosage: 4 MG, Q4H
     Route: 042
  9. PROTONIX [Concomitant]
     Dosage: 40 MG, DAILY
     Route: 048
  10. SUDAFED 12 HOUR [Concomitant]
     Dosage: 60 MG, Q6H
     Route: 048
  11. ISONIAZID [Concomitant]
  12. FOLIC ACID [Concomitant]
     Dosage: 1 MG, DAILY
     Route: 048
  13. DOCUSATE [Concomitant]
     Dosage: 100 MG, DAILY
  14. HEPARIN [Concomitant]
     Dosage: 5000 MG, Q8H
  15. PHENERGAN [Concomitant]
     Dosage: 25 MG,
     Route: 048
  16. OXYCODONE HCL [Concomitant]
     Dosage: 5 MG, Q4H
  17. GUAIFENESIN [Concomitant]
     Dosage: 600 MG, BID

REACTIONS (25)
  - ENTEROCOCCAL BACTERAEMIA [None]
  - EYE PAIN [None]
  - CHEST PAIN [None]
  - EYE HAEMORRHAGE [None]
  - HYPOKALAEMIA [None]
  - VITREOUS HAEMORRHAGE [None]
  - PNEUMONIA [None]
  - PYREXIA [None]
  - STAPHYLOCOCCAL INFECTION [None]
  - PLEURAL EFFUSION [None]
  - BACTERIAL INFECTION [None]
  - BLOOD PRESSURE INCREASED [None]
  - TACHYCARDIA [None]
  - WHITE BLOOD CELL COUNT INCREASED [None]
  - BACK PAIN [None]
  - ANAEMIA [None]
  - DIARRHOEA [None]
  - NAUSEA [None]
  - DYSPNOEA [None]
  - VITREOUS FLOATERS [None]
  - SICKLE CELL ANAEMIA WITH CRISIS [None]
  - VOMITING [None]
  - ARTHRALGIA [None]
  - VISUAL IMPAIRMENT [None]
  - PAIN IN EXTREMITY [None]
